FAERS Safety Report 18236826 (Version 1)
Quarter: 2020Q3

REPORT INFORMATION
  Report Type: Spontaneous
  Country: US (occurrence: US)
  Receive Date: 20200907
  Receipt Date: 20200907
  Transmission Date: 20201103
  Serious: No
  Sender: FDA-Public Use
  Company Number: US-HORIZON-TEP-1745-2020

PATIENT
  Age: 49 Year
  Sex: Female

DRUGS (1)
  1. TEPEZZA [Suspect]
     Active Substance: TEPROTUMUMAB-TRBW
     Indication: ENDOCRINE OPHTHALMOPATHY
     Route: 042

REACTIONS (4)
  - Anti-thyroid antibody positive [Unknown]
  - Diarrhoea [Unknown]
  - Polyuria [Unknown]
  - Nausea [Unknown]
